FAERS Safety Report 24673165 (Version 1)
Quarter: 2024Q4

REPORT INFORMATION
  Report Type: Spontaneous
  Country: US (occurrence: US)
  Receive Date: 20241128
  Receipt Date: 20241128
  Transmission Date: 20250115
  Serious: No
  Sender: IBSA INSTITUT BIOCHIMIQUE
  Company Number: US-IBSA PHARMA INC.-2024IBS000089

PATIENT

DRUGS (1)
  1. TIROSINT [Suspect]
     Active Substance: LEVOTHYROXINE SODIUM
     Indication: Hypothyroidism
     Dosage: UNK, QD
     Route: 048
     Dates: end: 20240110

REACTIONS (7)
  - Thyroid mass [Recovering/Resolving]
  - Cushingoid [Recovered/Resolved]
  - Clubbing [Recovered/Resolved]
  - Swollen tongue [Recovered/Resolved]
  - Blood cholesterol abnormal [Recovered/Resolved]
  - Weight increased [Recovered/Resolved]
  - Arthralgia [Recovered/Resolved]
